FAERS Safety Report 5042953-7 (Version None)
Quarter: 2006Q2

REPORT INFORMATION
  Report Type: 
  Country: None (occurrence: None)
  Receive Date: 20060627
  Receipt Date: 20060614
  Transmission Date: 20061013
  Serious: Yes (Hospitalization)
  Sender: FDA-Public Use
  Company Number: 2006075455

PATIENT
  Sex: Female

DRUGS (1)
  1. ZELDOX (CAPSULES) (ZIPRASIDONE) [Suspect]
     Indication: AFFECT LABILITY
     Dosage: 120 MG (60 MG, 2 IN 1 D), ORAL
     Route: 048

REACTIONS (1)
  - INCORRECT DOSE ADMINISTERED [None]
